FAERS Safety Report 13121026 (Version 1)
Quarter: 2017Q1

REPORT INFORMATION
  Report Type: Spontaneous
  Country: US (occurrence: US)
  Receive Date: 20170113
  Receipt Date: 20170113
  Transmission Date: 20170428
  Serious: Yes (Life-Threatening, Hospitalization)
  Sender: FDA-Public Use
  Company Number: None

PATIENT
  Age: 57 Year
  Sex: Female
  Weight: 94.5 kg

DRUGS (2)
  1. MULTIHANCE [Suspect]
     Active Substance: GADOBENATE DIMEGLUMINE
     Indication: SCAN WITH CONTRAST
     Dosage: ?          OTHER FREQUENCY:ONCE;?
     Route: 042
     Dates: start: 20161229
  2. MULTIHANCE [Suspect]
     Active Substance: GADOBENATE DIMEGLUMINE
     Indication: NUCLEAR MAGNETIC RESONANCE IMAGING
     Dosage: ?          OTHER FREQUENCY:ONCE;?
     Route: 042
     Dates: start: 20161229

REACTIONS (11)
  - Dyspnoea [None]
  - Nausea [None]
  - Throat tightness [None]
  - Swollen tongue [None]
  - Pharyngeal oedema [None]
  - Headache [None]
  - Vomiting [None]
  - Muscle tightness [None]
  - Contrast media reaction [None]
  - Stridor [None]
  - Oedema mouth [None]

NARRATIVE: CASE EVENT DATE: 20161229
